FAERS Safety Report 19811660 (Version 1)
Quarter: 2021Q3

REPORT INFORMATION
  Report Type: Spontaneous
  Country: IN (occurrence: IN)
  Receive Date: 20210909
  Receipt Date: 20210909
  Transmission Date: 20211014
  Serious: Yes (Other)
  Sender: FDA-Public Use
  Company Number: ALC2021IN004895

PATIENT

DRUGS (1)
  1. BSS [Suspect]
     Active Substance: CALCIUM CHLORIDE\MAGNESIUM CHLORIDE\POTASSIUM CHLORIDE\SODIUM ACETATE\SODIUM CHLORIDE\SODIUM CITRATE
     Indication: SURGERY
     Dosage: UNK
     Route: 065

REACTIONS (4)
  - Hypopyon [Unknown]
  - Iridocyclitis [Unknown]
  - Inflammation [Unknown]
  - Adverse reaction [Unknown]

NARRATIVE: CASE EVENT DATE: 20210817
